FAERS Safety Report 12223440 (Version 4)
Quarter: 2016Q3

REPORT INFORMATION
  Report Type: Spontaneous
  Country: US (occurrence: US)
  Receive Date: 20160330
  Receipt Date: 20160728
  Transmission Date: 20161109
  Serious: Yes (Hospitalization, Other)
  Sender: FDA-Public Use
  Company Number: US-BAYER-2016-060339

PATIENT
  Age: 27 Year
  Sex: Female
  Weight: 61.68 kg

DRUGS (7)
  1. CRYSELLE [Concomitant]
     Active Substance: ETHINYL ESTRADIOL\NORGESTREL
     Dosage: UNK
     Dates: start: 201403, end: 201502
  2. ZANTAC [Concomitant]
     Active Substance: RANITIDINE HYDROCHLORIDE
  3. PERCOCET [Concomitant]
     Active Substance: ACETAMINOPHEN\OXYCODONE HYDROCHLORIDE
  4. MOTRIN [Concomitant]
     Active Substance: IBUPROFEN
  5. LO/OVRAL [Concomitant]
     Active Substance: ETHINYL ESTRADIOL\NORGESTREL
  6. MIRENA [Suspect]
     Active Substance: LEVONORGESTREL
     Indication: CONTRACEPTION
     Dosage: 20 MCG/24HR, CONT
     Route: 015
     Dates: start: 20130322, end: 20140312
  7. KEFLEX [Concomitant]
     Active Substance: CEPHALEXIN

REACTIONS (7)
  - Drug ineffective [None]
  - Haemorrhage in pregnancy [None]
  - Salpingectomy [None]
  - Abdominal pain lower [None]
  - Ectopic pregnancy with contraceptive device [None]
  - Device expulsion [None]
  - Procedural pain [None]

NARRATIVE: CASE EVENT DATE: 2014
